FAERS Safety Report 8772949 (Version 1)
Quarter: 2012Q4

REPORT INFORMATION
  Report Type: 
  Country: FR (occurrence: FR)
  Receive Date: 20120907
  Receipt Date: 20120907
  Transmission Date: 20130627
  Serious: Yes (Death, Disabling, Other)
  Sender: FDA-Public Use
  Company Number: PHHY2012FR077659

PATIENT
  Age: 72 Year
  Sex: Female

DRUGS (2)
  1. NEORAL [Suspect]
     Indication: BONE MARROW FAILURE
     Dosage: 0.6 ml, BID
     Dates: start: 200904, end: 201002
  2. NEORAL [Suspect]
     Dosage: 0.3 ml, BID
     Dates: start: 201002

REACTIONS (11)
  - Acute respiratory distress syndrome [Fatal]
  - Cerebrovascular accident [Unknown]
  - Cerebral ischaemia [Unknown]
  - Gingivitis [Not Recovered/Not Resolved]
  - Tongue oedema [Unknown]
  - Oedema mouth [Unknown]
  - Arteriovenous fistula occlusion [Unknown]
  - Renal failure [Recovered/Resolved]
  - Blood creatinine increased [Unknown]
  - Blood urea increased [Unknown]
  - Hypertension [Unknown]
